FAERS Safety Report 9611869 (Version 2)
Quarter: 2013Q4

REPORT INFORMATION
  Report Type: Spontaneous
  Country: ES (occurrence: ES)
  Receive Date: 20131010
  Receipt Date: 20131018
  Transmission Date: 20140711
  Serious: Yes (Other)
  Sender: FDA-Public Use
  Company Number: ES-GE HEALTHCARE MEDICAL DIAGNOSTICS-OMPQ-PR-1310S-1203

PATIENT
  Age: 46 Year
  Sex: Female
  Weight: 60 kg

DRUGS (2)
  1. OMNIPAQUE [Suspect]
     Indication: THERAPEUTIC EMBOLISATION
     Route: 065
  2. OMNIPAQUE [Suspect]
     Indication: DIAGNOSTIC PROCEDURE

REACTIONS (4)
  - Peau d^orange [Recovered/Resolved]
  - Laryngeal oedema [Recovered/Resolved]
  - Generalised oedema [Recovered/Resolved]
  - Bronchospasm [Recovered/Resolved]
